FAERS Safety Report 11330314 (Version 1)
Quarter: 2015Q3

REPORT INFORMATION
  Report Type: Spontaneous
  Country: US (occurrence: None)
  Receive Date: 20150730
  Receipt Date: 20150730
  Transmission Date: 20151125
  Serious: Yes (Other)
  Sender: FDA-Public Use
  Company Number: None

PATIENT
  Age: 46 Year
  Sex: Female
  Weight: 62.14 kg

DRUGS (14)
  1. GADOLINIUM [Suspect]
     Active Substance: GADOLINIUM
     Indication: BREAST SCAN
     Dosage: ANNUALLY WITH MRI, INTO A VEIN
  2. GADOLINIUM [Suspect]
     Active Substance: GADOLINIUM
     Indication: NUCLEAR MAGNETIC RESONANCE IMAGING
     Dosage: ANNUALLY WITH MRI, INTO A VEIN
  3. VITAMIN B12 [Concomitant]
     Active Substance: CYANOCOBALAMIN
  4. CITRACAL [Concomitant]
     Active Substance: CALCIUM CITRATE
  5. ENBREL [Concomitant]
     Active Substance: ETANERCEPT
  6. VITAMIN D [Concomitant]
     Active Substance: CHOLECALCIFEROL
  7. ZYRTEC [Concomitant]
     Active Substance: CETIRIZINE HYDROCHLORIDE
  8. GADOLINIUM [Suspect]
     Active Substance: GADOLINIUM
     Indication: SCAN WITH CONTRAST
     Dosage: ANNUALLY WITH MRI, INTO A VEIN
  9. INVOKANA [Concomitant]
     Active Substance: CANAGLIFLOZIN
  10. CRESTOR [Concomitant]
     Active Substance: ROSUVASTATIN CALCIUM
  11. ASA [Concomitant]
     Active Substance: ASPIRIN
  12. FLONASE [Concomitant]
     Active Substance: FLUTICASONE PROPIONATE
  13. METFORMIN [Concomitant]
     Active Substance: METFORMIN HYDROCHLORIDE
  14. LOVASA [Concomitant]

REACTIONS (1)
  - Aphasia [None]

NARRATIVE: CASE EVENT DATE: 20150729
